FAERS Safety Report 4273006-3 (Version None)
Quarter: 2004Q1

REPORT INFORMATION
  Report Type: 
  Country: None (occurrence: None)
  Receive Date: 20040114
  Receipt Date: 20040107
  Transmission Date: 20041129
  Serious: Yes (Other)
  Sender: FDA-Public Use
  Company Number: FR-JNJFOC-20040100965

PATIENT
  Sex: Male

DRUGS (1)
  1. REMICADE [Suspect]
     Indication: RHEUMATOID ARTHRITIS
     Dosage: INTRAVENOUS

REACTIONS (6)
  - ABSCESS [None]
  - INJURY [None]
  - NOCARDIOSIS [None]
  - SUBCUTANEOUS NODULE [None]
  - VISUAL ACUITY REDUCED [None]
  - WOUND [None]
